FAERS Safety Report 24242881 (Version 1)
Quarter: 2024Q3

REPORT INFORMATION
  Report Type: Spontaneous
  Country: IN (occurrence: IN)
  Receive Date: 20240823
  Receipt Date: 20240823
  Transmission Date: 20241016
  Serious: Yes (Hospitalization, Other)
  Sender: RANBAXY
  Company Number: IN-SUN PHARMACEUTICAL INDUSTRIES LTD-2024R1-464159

PATIENT
  Sex: Female
  Weight: 1.68 kg

DRUGS (11)
  1. CEFOTAXIME [Suspect]
     Active Substance: CEFOTAXIME SODIUM
     Indication: Antibiotic therapy
     Dosage: 50 MILLIGRAM/KILOGRAM, BID
     Route: 065
  2. FLUCONAZOLE [Suspect]
     Active Substance: FLUCONAZOLE
     Indication: Fungal test positive
     Dosage: 20 MILLIGRAM/KILOGRAM
     Route: 042
  3. FLUCONAZOLE [Suspect]
     Active Substance: FLUCONAZOLE
     Dosage: 10 MILLIGRAM/KILOGRAM
     Route: 042
  4. MEROPENEM [Suspect]
     Active Substance: MEROPENEM
     Indication: Antibiotic therapy
     Dosage: 20 MILLIGRAM/KILOGRAM, TID
     Route: 042
  5. PHENOBARBITAL [Suspect]
     Active Substance: PHENOBARBITAL
     Indication: Seizure
     Dosage: 20 MILLIGRAM/KILOGRAM, DAILY
     Route: 042
  6. PHENOBARBITAL [Suspect]
     Active Substance: PHENOBARBITAL
     Dosage: 4 MILLIGRAM/KILOGRAM, DAILY
     Route: 042
  7. PIPERACILLIN SODIUM\TAZOBACTAM SODIUM [Suspect]
     Active Substance: PIPERACILLIN SODIUM\TAZOBACTAM SODIUM
     Indication: Antibiotic therapy
     Dosage: 100 MILLIGRAM/KILOGRAM, BID
     Route: 042
  8. VANCOMYCIN [Suspect]
     Active Substance: VANCOMYCIN
     Indication: Antibiotic therapy
     Dosage: 15 MILLIGRAM/KILOGRAM, BID
     Route: 065
  9. AMIKACIN [Suspect]
     Active Substance: AMIKACIN
     Dosage: 15 MILLIGRAM/KILOGRAM
     Route: 065
  10. AMIKACIN [Suspect]
     Active Substance: AMIKACIN
     Indication: Antibiotic therapy
  11. AMIKACIN [Suspect]
     Active Substance: AMIKACIN

REACTIONS (3)
  - Drug ineffective [Unknown]
  - Drug resistance [Unknown]
  - Condition aggravated [Unknown]
